FAERS Safety Report 20081005 (Version 2)
Quarter: 2021Q4

REPORT INFORMATION
  Report Type: Spontaneous
  Country: US (occurrence: US)
  Receive Date: 20211117
  Receipt Date: 20211216
  Transmission Date: 20220303
  Serious: No
  Sender: FDA-Public Use
  Company Number: US-GSKCCFUS-Case-01219126_AE-71429

PATIENT
  Age: 77 Year
  Sex: Female

DRUGS (2)
  1. ANORO ELLIPTA [Suspect]
     Active Substance: UMECLIDINIUM BROMIDE\VILANTEROL TRIFENATATE
     Indication: Product used for unknown indication
     Dosage: UNK, QD(62.5/25 MCG)
     Dates: start: 202109, end: 202111
  2. INCRUSE ELLIPTA [Suspect]
     Active Substance: UMECLIDINIUM BROMIDE
     Indication: Product used for unknown indication
     Dosage: 62.5UG  QD
     Dates: start: 2016, end: 202108

REACTIONS (2)
  - Cardiovascular disorder [Not Recovered/Not Resolved]
  - Pulse abnormal [Unknown]

NARRATIVE: CASE EVENT DATE: 20210901
